FAERS Safety Report 6369992-8 (Version None)
Quarter: 2009Q3

REPORT INFORMATION
  Report Type: 
  Country: None (occurrence: None)
  Receive Date: 20090923
  Receipt Date: 20070608
  Transmission Date: 20100115
  Serious: Yes (Hospitalization)
  Sender: FDA-Public Use
  Company Number: US-ASTRAZENECA-2006UW08231

PATIENT
  Age: 19366 Day
  Sex: Female
  Weight: 97 kg

DRUGS (9)
  1. SEROQUEL [Suspect]
     Indication: BIPOLAR DISORDER
     Route: 048
     Dates: start: 19970101
  2. SEROQUEL [Suspect]
     Dosage: 100 MG - 400 MG
     Route: 048
     Dates: start: 20000303
  3. LIPITOR [Concomitant]
  4. ATIVAN [Concomitant]
     Dosage: STRENGTH- 1 MG, 2 MG. DOSE- 3 MG DAILY
     Route: 048
  5. LITHIUM CARBONATE [Concomitant]
     Dosage: 1200 - 1500 MG DAILY
     Route: 048
  6. DIPHENHYDRAMINE HCL [Concomitant]
     Route: 048
  7. SERZONE [Concomitant]
     Route: 048
  8. HALDOL [Concomitant]
  9. LITHOBID [Concomitant]
     Route: 048

REACTIONS (2)
  - GLUCOSE TOLERANCE IMPAIRED [None]
  - TYPE 2 DIABETES MELLITUS [None]
